FAERS Safety Report 12685553 (Version 1)
Quarter: 2016Q3

REPORT INFORMATION
  Report Type: Spontaneous
  Country: SE (occurrence: SE)
  Receive Date: 20160825
  Receipt Date: 20160825
  Transmission Date: 20161109
  Serious: Yes (Other)
  Sender: FDA-Public Use
  Company Number: SE-PFIZER INC-2016395218

PATIENT
  Age: 48 Year
  Sex: Female

DRUGS (2)
  1. ALVEDON [Concomitant]
     Active Substance: ACETAMINOPHEN
  2. DALACIN [Suspect]
     Active Substance: CLINDAMYCIN\CLINDAMYCIN PHOSPHATE
     Indication: POSTOPERATIVE WOUND INFECTION
     Dosage: 300 MG, 3X/DAY
     Dates: start: 20160801, end: 20160814

REACTIONS (2)
  - Toxic skin eruption [Unknown]
  - Liver disorder [Unknown]

NARRATIVE: CASE EVENT DATE: 20160813
